FAERS Safety Report 17743797 (Version 2)
Quarter: 2020Q2

REPORT INFORMATION
  Report Type: Spontaneous
  Country: US (occurrence: US)
  Receive Date: 20200505
  Receipt Date: 20200511
  Transmission Date: 20200714
  Serious: Yes (Other)
  Sender: FDA-Public Use
  Company Number: US-GLAXOSMITHKLINE-US2020074513

PATIENT
  Age: 55 Year
  Sex: Female

DRUGS (3)
  1. ANORO ELLIPTA [Suspect]
     Active Substance: UMECLIDINIUM BROMIDE\VILANTEROL TRIFENATATE
     Indication: CHRONIC OBSTRUCTIVE PULMONARY DISEASE
     Dosage: UNK
     Route: 065
  2. BREO ELLIPTA [Suspect]
     Active Substance: FLUTICASONE FUROATE\VILANTEROL TRIFENATATE
     Indication: ASTHMA
     Dosage: UNK
     Route: 065
  3. BREO ELLIPTA [Suspect]
     Active Substance: FLUTICASONE FUROATE\VILANTEROL TRIFENATATE
     Indication: RESPIRATORY DISORDER

REACTIONS (14)
  - Malignant neoplasm progression [Unknown]
  - Impaired healing [Unknown]
  - Bone disorder [Unknown]
  - Off label use [Unknown]
  - Secretion discharge [Unknown]
  - Product use in unapproved indication [Unknown]
  - Metastases to lymph nodes [Unknown]
  - Osteopenia [Recovering/Resolving]
  - Asthma [Unknown]
  - Foot fracture [Unknown]
  - Underdose [Unknown]
  - Lymphadenectomy [Unknown]
  - Mastectomy [Unknown]
  - Cough [Unknown]

NARRATIVE: CASE EVENT DATE: 201605
